FAERS Safety Report 25898983 (Version 1)
Quarter: 2025Q4

REPORT INFORMATION
  Report Type: Spontaneous
  Country: AU (occurrence: AU)
  Receive Date: 20251009
  Receipt Date: 20251009
  Transmission Date: 20260117
  Serious: Yes (Other)
  Sender: BAXTER
  Company Number: AU-BAXTER-2025BAX022272

PATIENT
  Age: 7 Decade
  Sex: Female

DRUGS (8)
  1. CYCLOPHOSPHAMIDE [Suspect]
     Active Substance: CYCLOPHOSPHAMIDE
     Indication: Immunosuppression
     Dosage: 750 MG, EVERY 2 WK
     Route: 042
  2. METFORMIN [Concomitant]
     Active Substance: METFORMIN HYDROCHLORIDE
     Dosage: 1000 MG, BID
     Route: 065
  3. DULAGLUTIDE [Concomitant]
     Active Substance: DULAGLUTIDE
     Dosage: 1.5 MG, 1X A WEEK
     Route: 058
  4. OLMESARTAN [Concomitant]
     Active Substance: OLMESARTAN
     Dosage: 40 MG
     Route: 065
  5. AMLODIPINE [Concomitant]
     Active Substance: AMLODIPINE BESYLATE
     Dosage: 5 MG
     Route: 065
  6. HYDROCHLOROTHIAZIDE [Concomitant]
     Active Substance: HYDROCHLOROTHIAZIDE
     Dosage: 25 MG, QD
     Route: 065
  7. ATORVASTATIN [Concomitant]
     Active Substance: ATORVASTATIN
     Dosage: 20 MG, QD
     Route: 065
  8. MELATONIN [Concomitant]
     Active Substance: MELATONIN
     Dosage: 2 MG, NOCTE
     Route: 065

REACTIONS (5)
  - Extradural abscess [Unknown]
  - Intervertebral discitis [Unknown]
  - Escherichia bacteraemia [Unknown]
  - Neutropenic sepsis [Recovering/Resolving]
  - Varicella zoster virus infection [Unknown]
